FAERS Safety Report 6556894-7 (Version None)
Quarter: 2010Q1

REPORT INFORMATION
  Report Type: 
  Country: None (occurrence: None)
  Receive Date: 20100126
  Receipt Date: 20100112
  Transmission Date: 20100710
  Serious: Yes (Hospitalization)
  Sender: FDA-Public Use
  Company Number: JP-001308

PATIENT
  Sex: Male

DRUGS (3)
  1. DESMOPRESSIN ACETATE [Suspect]
     Indication: DIABETES INSIPIDUS
     Dosage: 10 ?G NASAL
     Route: 045
     Dates: start: 20091208, end: 20091231
  2. TAKEPRON [Concomitant]
  3. ZYLORIC /00003301/ [Concomitant]

REACTIONS (6)
  - ALTERED STATE OF CONSCIOUSNESS [None]
  - PATHOGEN RESISTANCE [None]
  - PSEUDOMONAS INFECTION [None]
  - RENAL FAILURE ACUTE [None]
  - RESTLESSNESS [None]
  - SOMNOLENCE [None]
